FAERS Safety Report 9468075 (Version 1)
Quarter: 2013Q3

REPORT INFORMATION
  Report Type: Report from Study
  Country: CA (occurrence: CA)
  Receive Date: 20130821
  Receipt Date: 20130821
  Transmission Date: 20140515
  Serious: Yes (Other)
  Sender: FDA-Public Use
  Company Number: CA-ABBOTT-13P-028-1133361-00

PATIENT
  Age: 51 Year
  Sex: Female
  Weight: 96.7 kg

DRUGS (7)
  1. HUMIRA [Suspect]
     Indication: RHEUMATOID ARTHRITIS
     Route: 058
     Dates: start: 2009, end: 201303
  2. HUMIRA [Suspect]
     Route: 058
     Dates: start: 201305, end: 20130724
  3. METHOTREXATE [Concomitant]
     Indication: RHEUMATOID ARTHRITIS
     Dates: start: 2007
  4. SYNTHROID [Concomitant]
     Indication: HYPOTHYROIDISM
     Route: 048
     Dates: start: 2003
  5. CIPRALEX [Concomitant]
     Indication: DEPRESSION
     Route: 048
  6. HCT [Concomitant]
     Indication: FLUID RETENTION
     Route: 048
  7. VITAMIN D [Concomitant]
     Indication: VITAMIN SUPPLEMENTATION
     Route: 048
     Dates: start: 2008

REACTIONS (5)
  - Synovial rupture [Recovered/Resolved]
  - Surgery [Unknown]
  - Procedural pain [Recovered/Resolved]
  - Drug dose omission [Unknown]
  - Arthritis [Recovering/Resolving]
